FAERS Safety Report 4441940-7 (Version None)
Quarter: 2004Q3

REPORT INFORMATION
  Report Type: 
  Country: None (occurrence: None)
  Receive Date: 20040903
  Receipt Date: 20040713
  Transmission Date: 20050211
  Serious: Yes (Other)
  Sender: FDA-Public Use
  Company Number: 2004UW11629

PATIENT
  Age: 75 Year
  Sex: Female
  Weight: 60.782 kg

DRUGS (3)
  1. CRESTOR [Suspect]
     Indication: BLOOD CHOLESTEROL INCREASED
     Dosage: 10 MG ONCE PO
     Route: 048
  2. DIAZEPAM [Concomitant]
  3. XALATAN [Concomitant]

REACTIONS (3)
  - ALOPECIA [None]
  - EMOTIONAL DISORDER [None]
  - NAUSEA [None]
